FAERS Safety Report 9538227 (Version 1)
Quarter: 2013Q3

REPORT INFORMATION
  Report Type: Spontaneous
  Country: US (occurrence: US)
  Receive Date: 20130920
  Receipt Date: 20130920
  Transmission Date: 20140515
  Serious: No
  Sender: FDA-Public Use
  Company Number: US-BIOGENIDEC-2013BI086175

PATIENT
  Sex: Male

DRUGS (1)
  1. AVONEX [Suspect]
     Indication: MULTIPLE SCLEROSIS
     Route: 030
     Dates: start: 20130418

REACTIONS (4)
  - Faecal incontinence [Recovered/Resolved with Sequelae]
  - Dysuria [Recovered/Resolved with Sequelae]
  - Pollakiuria [Recovered/Resolved with Sequelae]
  - Micturition urgency [Recovered/Resolved with Sequelae]
